FAERS Safety Report 23104901 (Version 12)
Quarter: 2025Q1

REPORT INFORMATION
  Report Type: Report from Study
  Country: EG (occurrence: EG)
  Receive Date: 20231025
  Receipt Date: 20250221
  Transmission Date: 20250408
  Serious: Yes (Life-Threatening, Hospitalization, Disabling, Other)
  Sender: NOVARTIS
  Company Number: EG-002147023-NVSC2023EG225707

PATIENT
  Age: 37 Year
  Sex: Male
  Weight: 67 kg

DRUGS (19)
  1. GILENYA [Suspect]
     Active Substance: FINGOLIMOD HYDROCHLORIDE
     Indication: Multiple sclerosis
     Dosage: 1 DOSAGE FORM, QD (END DATE: AFTER 9 MONTHS FROM THE START DATE.)
     Route: 048
     Dates: start: 2016
  2. GILENYA [Suspect]
     Active Substance: FINGOLIMOD HYDROCHLORIDE
     Dosage: 1 DOSAGE FORM, QD (ONE CAPSULE ONCE DAILY QD AFTER 6 MONTHS FROM THE START DATE.)
     Route: 048
     Dates: start: 2019
  3. GILENYA [Suspect]
     Active Substance: FINGOLIMOD HYDROCHLORIDE
     Dosage: 1 DOSAGE FORM, QD
     Route: 048
     Dates: start: 20160124, end: 202001
  4. GILENYA [Suspect]
     Active Substance: FINGOLIMOD HYDROCHLORIDE
     Route: 048
  5. GILENYA [Suspect]
     Active Substance: FINGOLIMOD HYDROCHLORIDE
     Route: 048
  6. MAYZENT [Suspect]
     Active Substance: SIPONIMOD
     Indication: Multiple sclerosis
     Dosage: 1 DOSAGE FORM, QD
     Route: 048
     Dates: start: 20240306, end: 20240728
  7. MAYZENT [Suspect]
     Active Substance: SIPONIMOD
     Route: 048
     Dates: start: 2024, end: 20240808
  8. MAYZENT [Suspect]
     Active Substance: SIPONIMOD
     Dosage: 1 DOSAGE FORM, QD END DATE: 7 DAYS AFTER THE START DATE
     Route: 048
     Dates: start: 20240819
  9. MAYZENT [Suspect]
     Active Substance: SIPONIMOD
     Dosage: 0.25 DOSAGE FORM OF 2 MG, QD
     Route: 048
  10. MAYZENT [Suspect]
     Active Substance: SIPONIMOD
     Dosage: 0.50 DOSAGE FORM OF 2MG, QD
     Route: 048
  11. MAYZENT [Suspect]
     Active Substance: SIPONIMOD
     Dosage: 0.75 DOSAGE FORM OF 2 MG, QD
     Route: 048
  12. MAYZENT [Suspect]
     Active Substance: SIPONIMOD
     Dosage: 1 DOSAGE FORM/ 2MG, QD
     Route: 048
     Dates: start: 202412
  13. MAYZENT [Suspect]
     Active Substance: SIPONIMOD
     Dosage: 1 DOSAGE FORM, QD ONE TABLET PER DAY
     Route: 048
     Dates: start: 20241208, end: 20250208
  14. OMEGA 3 [Concomitant]
     Active Substance: CAPSAICIN
     Indication: Vitamin supplementation
     Dosage: 1 DOSAGE FORM, QD, (INITIATED WITH GILENYA AND STOPPED)
     Route: 065
     Dates: start: 20160124
  15. OMEGA 3 [Concomitant]
     Active Substance: CAPSAICIN
     Indication: Disturbance in attention
     Dosage: 1 DOSAGE FORM, QD, (INITIATED WITH GILENYA AND STOPPED)
     Route: 065
     Dates: start: 20230124
  16. OMEGA 3 [Concomitant]
     Active Substance: CAPSAICIN
     Indication: Memory impairment
  17. ESCITALOPRAM OXALATE [Concomitant]
     Active Substance: ESCITALOPRAM OXALATE
     Indication: Depression
     Dosage: 1 DOSAGE FORM, QD, (BEFORE SLEEP) (INITIATED WITH GILENYA AND STOPPED)
     Route: 065
     Dates: start: 20160124
  18. ZINC [Concomitant]
     Active Substance: ZINC
     Indication: Supplementation therapy
     Route: 065
     Dates: start: 202310
  19. SOLU-MEDROL [Concomitant]
     Active Substance: METHYLPREDNISOLONE SODIUM SUCCINATE
     Indication: Hypersensitivity
     Route: 065
     Dates: start: 2018

REACTIONS (32)
  - Anaemia [Recovered/Resolved]
  - White blood cell count decreased [Recovered/Resolved]
  - Pain in extremity [Not Recovered/Not Resolved]
  - Gait disturbance [Recovering/Resolving]
  - Multiple sclerosis relapse [Recovered/Resolved]
  - Multiple sclerosis relapse [Recovered/Resolved]
  - Multiple sclerosis relapse [Recovered/Resolved]
  - Multiple sclerosis relapse [Recovered/Resolved]
  - Multiple sclerosis relapse [Recovered/Resolved]
  - Multiple sclerosis relapse [Recovered/Resolved]
  - Multiple sclerosis relapse [Recovered/Resolved]
  - Multiple sclerosis relapse [Recovered/Resolved]
  - Multiple sclerosis relapse [Recovered/Resolved]
  - Multiple sclerosis relapse [Recovered/Resolved]
  - Multiple sclerosis relapse [Recovering/Resolving]
  - Heart rate irregular [Recovered/Resolved]
  - Epigastric discomfort [Recovered/Resolved]
  - Urinary incontinence [Recovered/Resolved]
  - Dehydration [Unknown]
  - Mental disorder [Unknown]
  - Balance disorder [Not Recovered/Not Resolved]
  - Movement disorder [Not Recovered/Not Resolved]
  - Drug intolerance [Recovering/Resolving]
  - Cardiac disorder [Recovering/Resolving]
  - Incorrect dose administered [Recovering/Resolving]
  - Drug ineffective [Not Recovered/Not Resolved]
  - Fatigue [Unknown]
  - Off label use [Unknown]
  - Abscess oral [Recovering/Resolving]
  - Abscess limb [Recovering/Resolving]
  - Wrong technique in product usage process [Unknown]
  - Product availability issue [Unknown]

NARRATIVE: CASE EVENT DATE: 20240306
